FAERS Safety Report 5101088-5 (Version None)
Quarter: 2006Q3

REPORT INFORMATION
  Report Type: 
  Country: None (occurrence: None)
  Receive Date: 20060906
  Receipt Date: 20060822
  Transmission Date: 20061208
  Serious: Yes (Other)
  Sender: FDA-Public Use
  Company Number: 2006094189

PATIENT
  Sex: Male
  Weight: 55.6 kg

DRUGS (6)
  1. LYRICA [Suspect]
     Indication: DRUG USE FOR UNKNOWN INDICATION
     Dosage: ORAL
     Route: 048
  2. GABAPENTIN [Suspect]
     Indication: BACK PAIN
     Dosage: 600 MG (300 MG, 2 IN 1 D), ORAL
     Route: 048
     Dates: end: 20060607
  3. OMEPRAZOLE [Concomitant]
  4. CITALOPRAM HYDROBROMIDE [Concomitant]
  5. PARACETAMOL [Concomitant]
  6. CHEMOTHERAPY NOS [Concomitant]

REACTIONS (5)
  - CONVULSION [None]
  - DRUG WITHDRAWAL SYNDROME [None]
  - HEART RATE INCREASED [None]
  - LOSS OF CONSCIOUSNESS [None]
  - MUSCLE SPASMS [None]
